FAERS Safety Report 10036222 (Version 1)
Quarter: 2014Q1

REPORT INFORMATION
  Report Type: Spontaneous
  Country: NL (occurrence: NL)
  Receive Date: 20140325
  Receipt Date: 20140325
  Transmission Date: 20141002
  Serious: Yes (Hospitalization)
  Sender: FDA-Public Use
  Company Number: NL-009507513-1403NLD010263

PATIENT
  Sex: Male

DRUGS (4)
  1. SIMVASTATIN [Suspect]
     Indication: BLOOD CHOLESTEROL
     Dosage: 1 DF, QD, EXTRA INFO: OF 20 MG OF 40 MG
     Route: 048
     Dates: start: 2011, end: 2013
  2. PERINDOPRIL [Concomitant]
     Indication: BLOOD CHOLESTEROL
     Dosage: 8 MG, QD
     Route: 048
     Dates: start: 2007
  3. PRAVASTATIN SODIUM [Suspect]
     Indication: BLOOD CHOLESTEROL
     Dosage: 1 MG, QD, EXTRA INFO: 20MG OF 40MG
     Route: 048
     Dates: start: 2011, end: 2013
  4. BISOPROLOL [Concomitant]
     Dosage: 5 MG, QD
     Route: 048
     Dates: start: 2007

REACTIONS (1)
  - Phimosis [Recovered/Resolved]
